FAERS Safety Report 25548455 (Version 1)
Quarter: 2025Q3

REPORT INFORMATION
  Report Type: Report from Study
  Country: US (occurrence: US)
  Receive Date: 20250714
  Receipt Date: 20250714
  Transmission Date: 20251021
  Serious: Yes (Death, Other)
  Sender: ACADIA PHARMACEUTICALS
  Company Number: US-ACADIA PHARMACEUTICALS INC.-ACA-2025-PIM-008157

PATIENT
  Sex: Female

DRUGS (12)
  1. NUPLAZID [Suspect]
     Active Substance: PIMAVANSERIN TARTRATE
     Indication: Hallucination, visual
     Dosage: 34 MILLIGRAM, QD
     Route: 048
     Dates: start: 20181119
  2. AMANTADINE [Concomitant]
     Active Substance: AMANTADINE
  3. DONEPEZIL [Concomitant]
     Active Substance: DONEPEZIL
  4. EZETIMIBE [Concomitant]
     Active Substance: EZETIMIBE
  5. GABAPENTIN [Concomitant]
     Active Substance: GABAPENTIN
  6. LISINOPRIL [Concomitant]
     Active Substance: LISINOPRIL
  7. PROLIA [Concomitant]
     Active Substance: DENOSUMAB
  8. RASAGILINE [Concomitant]
     Active Substance: RASAGILINE
  9. RYTARY [Concomitant]
     Active Substance: CARBIDOPA\LEVODOPA
  10. RYTARY [Concomitant]
     Active Substance: CARBIDOPA\LEVODOPA
  11. VITAMIN D NOS [Concomitant]
     Active Substance: CHOLECALCIFEROL\ERGOCALCIFEROL
  12. VITAMIN D3 [Concomitant]
     Active Substance: CHOLECALCIFEROL

REACTIONS (2)
  - Death [Fatal]
  - Product use in unapproved indication [Recovered/Resolved]
